FAERS Safety Report 6585998-8 (Version None)
Quarter: 2010Q1

REPORT INFORMATION
  Report Type: 
  Country: None (occurrence: None)
  Receive Date: 20100217
  Receipt Date: 20100210
  Transmission Date: 20100710
  Serious: Yes (Hospitalization, Other)
  Sender: FDA-Public Use
  Company Number: BR-ABBOTT-10P-020-0625864-00

PATIENT
  Sex: Female
  Weight: 57 kg

DRUGS (10)
  1. HUMIRA [Suspect]
     Indication: RHEUMATOID ARTHRITIS
     Route: 058
  2. HUMIRA [Suspect]
     Dates: start: 20091028
  3. METFORMIN [Concomitant]
     Indication: DIABETES MELLITUS
     Route: 048
     Dates: start: 20070101
  4. ATORVASTATIN [Concomitant]
     Indication: BLOOD CHOLESTEROL INCREASED
     Route: 048
     Dates: start: 20070101
  5. SERTRALINE HCL [Concomitant]
     Indication: DEPRESSION
     Route: 048
     Dates: start: 20040101
  6. SERETIDE [Concomitant]
     Indication: BRONCHIECTASIS
     Dosage: 50MG/250MG
     Route: 055
     Dates: start: 20090101
  7. BUDESONIDE [Concomitant]
     Indication: BRONCHIECTASIS
     Route: 048
     Dates: start: 20090101
  8. HYDROCHLOROTHIAZIDE [Concomitant]
     Indication: HYPERTENSION
     Route: 048
     Dates: start: 20070101
  9. METHOTREXATE [Concomitant]
     Indication: RHEUMATOID ARTHRITIS
     Route: 048
     Dates: start: 19960101
  10. MAGISTRAL FORMULA [Concomitant]
     Indication: RHEUMATOID ARTHRITIS
     Dosage: AMITRIPTYLINE 12.5MG/ FOLIC ACID 0.5MG/ DICLOFENAC 50MG/ FAMOTIDINE 40MG/ NIMODIPINE 30MG
     Route: 048
     Dates: start: 19960101

REACTIONS (3)
  - BONE PAIN [None]
  - DRUG INEFFECTIVE [None]
  - INFLAMMATION [None]
